FAERS Safety Report 17159698 (Version 1)
Quarter: 2019Q4

REPORT INFORMATION
  Report Type: Spontaneous
  Country: IN (occurrence: IN)
  Receive Date: 20191216
  Receipt Date: 20191216
  Transmission Date: 20200122
  Serious: Yes (Life-Threatening, Other)
  Sender: FDA-Public Use
  Company Number: IN-BAUSCH-BL-2019-064300

PATIENT
  Age: 54 Year
  Sex: Male

DRUGS (2)
  1. PREDNISOLONE. [Suspect]
     Active Substance: PREDNISOLONE
     Indication: IGA NEPHROPATHY
     Route: 048
     Dates: start: 201703, end: 201805
  2. PREDNISOLONE. [Suspect]
     Active Substance: PREDNISOLONE
     Dosage: REDUCED DOSE
     Route: 048

REACTIONS (6)
  - Escherichia infection [Unknown]
  - Strongyloidiasis [Recovering/Resolving]
  - Respiratory failure [Unknown]
  - Hyperglycaemia [Unknown]
  - Atypical pneumonia [Unknown]
  - Acinetobacter infection [Unknown]

NARRATIVE: CASE EVENT DATE: 201804
